FAERS Safety Report 8471256-3 (Version None)
Quarter: 2012Q2

REPORT INFORMATION
  Report Type: 
  Country: None (occurrence: None)
  Receive Date: 20120621
  Receipt Date: 20120606
  Transmission Date: 20120825
  Serious: Yes (Other)
  Sender: FDA-Public Use
  Company Number: 2012SGN00223

PATIENT
  Age: 55 Year
  Sex: Male

DRUGS (6)
  1. PROMETHAZINE [Concomitant]
  2. ADCETRIS [Suspect]
     Indication: HODGKIN'S DISEASE
     Dosage: 1.8 MG/KG, Q21D, INTRAVENOUS
     Route: 042
     Dates: start: 20120212, end: 20120508
  3. BACTRIM [Concomitant]
  4. AMBIEN [Concomitant]
  5. INSULIN [Concomitant]
  6. LORTAB (HYDROCODONE, PARACETMOL) [Concomitant]

REACTIONS (4)
  - SKIN EXFOLIATION [None]
  - INFUSION SITE EXTRAVASATION [None]
  - BLISTER [None]
  - CELLULITIS [None]
